FAERS Safety Report 21350899 (Version 1)
Quarter: 2022Q3

REPORT INFORMATION
  Report Type: Spontaneous
  Country: US (occurrence: US)
  Receive Date: 20220919
  Receipt Date: 20220919
  Transmission Date: 20221027
  Serious: Yes (Other)
  Sender: FDA-Public Use
  Company Number: US-SANOFI-00274931

PATIENT
  Age: 65 Year
  Sex: Female

DRUGS (2)
  1. LANTUS [Suspect]
     Active Substance: INSULIN GLARGINE
     Indication: Diabetes mellitus
     Dosage: 36 IU, QD
     Route: 065
  2. LANTUS [Suspect]
     Active Substance: INSULIN GLARGINE
     Dosage: 38 IU, QD

REACTIONS (2)
  - Cataract [Unknown]
  - Visual impairment [Unknown]
